FAERS Safety Report 16476821 (Version 2)
Quarter: 2019Q4

REPORT INFORMATION
  Report Type: Report from Study
  Country: None (occurrence: US)
  Receive Date: 20190626
  Receipt Date: 20191217
  Transmission Date: 20200122
  Serious: Yes (Hospitalization, Other)
  Sender: FDA-Public Use
  Company Number: US-ABBVIE-19K-163-2830481-00

PATIENT
  Age: 63 Year
  Sex: Female
  Weight: 78.09 kg

DRUGS (2)
  1. HUMIRA [Suspect]
     Active Substance: ADALIMUMAB
     Indication: PSORIATIC ARTHROPATHY
  2. HUMIRA [Suspect]
     Active Substance: ADALIMUMAB
     Indication: PSORIASIS
     Route: 058

REACTIONS (10)
  - Hypokinesia [Unknown]
  - Asthenia [Unknown]
  - Amnesia [Unknown]
  - Heart rate decreased [Unknown]
  - Confusional state [Unknown]
  - Stent placement [Unknown]
  - Blood pressure decreased [Unknown]
  - Cerebrovascular accident [Unknown]
  - Cardiac operation [Unknown]
  - Pruritus [Unknown]

NARRATIVE: CASE EVENT DATE: 201805
